FAERS Safety Report 12409054 (Version 1)
Quarter: 2016Q2

REPORT INFORMATION
  Report Type: Report from Study
  Country: BR (occurrence: BR)
  Receive Date: 20160526
  Receipt Date: 20160526
  Transmission Date: 20160815
  Serious: Yes (Other)
  Sender: FDA-Public Use
  Company Number: PHHY2016BR072038

PATIENT
  Sex: Female
  Weight: 57 kg

DRUGS (1)
  1. ACLASTA [Suspect]
     Active Substance: ZOLEDRONIC ACID
     Indication: OSTEOPOROSIS
     Dosage: 5 MG, Q12MO
     Route: 042
     Dates: start: 2014

REACTIONS (7)
  - Malaise [Recovered/Resolved]
  - Sluggishness [Recovered/Resolved]
  - Drug ineffective [Unknown]
  - Chills [Recovered/Resolved]
  - Eating disorder [Unknown]
  - Fracture [Recovered/Resolved]
  - Weight decreased [Unknown]
